FAERS Safety Report 20580570 (Version 1)
Quarter: 2022Q1

REPORT INFORMATION
  Report Type: Spontaneous
  Country: US (occurrence: US)
  Receive Date: 20220311
  Receipt Date: 20220311
  Transmission Date: 20220423
  Serious: Yes (Hospitalization, Other)
  Sender: FDA-Public Use
  Company Number: US-SPECGX-T202200286

PATIENT
  Age: 39 Year
  Sex: Female

DRUGS (1)
  1. ACETAMINOPHEN\HYDROCODONE [Suspect]
     Active Substance: ACETAMINOPHEN\HYDROCODONE
     Indication: Pain
     Dosage: UNK
     Route: 048

REACTIONS (4)
  - Respiratory acidosis [Unknown]
  - Metabolic acidosis [Unknown]
  - Acute kidney injury [Recovering/Resolving]
  - Starvation ketoacidosis [Unknown]
